FAERS Safety Report 10215696 (Version 1)
Quarter: 2014Q2

REPORT INFORMATION
  Report Type: Spontaneous
  Country: AT (occurrence: None)
  Receive Date: 20140602
  Receipt Date: 20140602
  Transmission Date: 20141212
  Serious: Yes (Disabling)
  Sender: FDA-Public Use
  Company Number: SYM-2014-21372

PATIENT
  Sex: Male

DRUGS (5)
  1. ZOVIRAX [Suspect]
     Indication: HERPES VIRUS INFECTION
     Dosage: 5 IN 1 D, OCULAR USE
     Dates: start: 20140402, end: 20140404
  2. OFLOXACIN (OFLOXACIN) (OFLOXACIN) [Concomitant]
  3. VITAPOS (OTHER THERAPEUTIC PRODUCTS) (NULL) [Concomitant]
  4. HYPROMELLOSE (HYPROMELLOSE) [Concomitant]
  5. GENTEAL (HYPROMELLOSE) (HYPROMELLOSE) [Concomitant]

REACTIONS (12)
  - Blindness [None]
  - Periorbital disorder [None]
  - Skin exfoliation [None]
  - Ocular hyperaemia [None]
  - Foreign body in eye [None]
  - Lacrimation increased [None]
  - Eye pain [None]
  - Eye haemorrhage [None]
  - Therapy cessation [None]
  - Eye swelling [None]
  - Corneal erosion [None]
  - Corneal disorder [None]
